FAERS Safety Report 22186954 (Version 5)
Quarter: 2025Q4

REPORT INFORMATION
  Report Type: Spontaneous
  Country: US (occurrence: US)
  Receive Date: 20230407
  Receipt Date: 20251230
  Transmission Date: 20260117
  Serious: No
  Sender: LUPIN
  Company Number: US-LUPIN PHARMACEUTICALS INC.-2023-02635

PATIENT
  Age: 36 Year
  Weight: 68.027 kg

DRUGS (2)
  1. SERTRALINE HYDROCHLORIDE [Suspect]
     Active Substance: SERTRALINE HYDROCHLORIDE
     Indication: Anxiety
     Dosage: UNK, SEVERAL YEARS
     Route: 065
  2. SERTRALINE HYDROCHLORIDE [Suspect]
     Active Substance: SERTRALINE HYDROCHLORIDE
     Indication: Depression
     Dosage: 25 MG, QD, ONCE PER DAY IN THE MORNING
     Route: 065

REACTIONS (8)
  - Nausea [Unknown]
  - Pruritus [Unknown]
  - Illness [Unknown]
  - Dyspepsia [Unknown]
  - Headache [Unknown]
  - Abdominal pain upper [Unknown]
  - Constipation [Unknown]
  - Therapeutic product effect decreased [Unknown]
